FAERS Safety Report 5734419-3 (Version None)
Quarter: 2008Q2

REPORT INFORMATION
  Report Type: 
  Country: None (occurrence: None)
  Receive Date: 20080512
  Receipt Date: 20070503
  Transmission Date: 20081010
  Serious: No
  Sender: FDA-Public Use
  Company Number: A0650099A

PATIENT

DRUGS (1)
  1. NABUMETONE [Suspect]
     Indication: RHEUMATOID ARTHRITIS
     Route: 048

REACTIONS (2)
  - DRUG INEFFECTIVE [None]
  - PAIN [None]
